FAERS Safety Report 23792875 (Version 2)
Quarter: 2024Q2

REPORT INFORMATION
  Report Type: Spontaneous
  Country: US (occurrence: US)
  Receive Date: 20240429
  Receipt Date: 20240429
  Transmission Date: 20240716
  Serious: Yes (Hospitalization)
  Sender: FDA-Public Use
  Company Number: US-NAARI PTE LIMITED-2024NP000044

PATIENT
  Age: 12 Year
  Sex: Female

DRUGS (2)
  1. NORETHINDRONE [Suspect]
     Active Substance: NORETHINDRONE
     Indication: Therapeutic ovarian suppression
     Dosage: UNK
     Route: 048
  2. MEDROXYPROGESTERONE [Suspect]
     Active Substance: MEDROXYPROGESTERONE
     Indication: Therapeutic ovarian suppression
     Dosage: UNK
     Route: 065

REACTIONS (1)
  - Drug ineffective for unapproved indication [Unknown]
